FAERS Safety Report 5204063-5 (Version None)
Quarter: 2007Q1

REPORT INFORMATION
  Report Type: 
  Country: None (occurrence: None)
  Receive Date: 20070110
  Receipt Date: 20051109
  Transmission Date: 20070707
  Serious: No
  Sender: FDA-Public Use
  Company Number: US-BRISTOL-MYERS SQUIBB COMPANY-13174297

PATIENT
  Age: 25 Year
  Sex: Female

DRUGS (4)
  1. ABILIFY [Suspect]
     Dosage: ABILIFY: SOME ANXIETY WHEN TAKING 5MG QD; DOSE INCREASED TO 15MG QD AND ANXIETY LEVEL INCREASED
  2. WELLBUTRIN [Concomitant]
  3. ATIVAN [Concomitant]
  4. CLOZARIL [Concomitant]

REACTIONS (1)
  - ANXIETY [None]
